FAERS Safety Report 10497595 (Version 1)
Quarter: 2014Q4

REPORT INFORMATION
  Report Type: Spontaneous
  Country: US (occurrence: US)
  Receive Date: 20141006
  Receipt Date: 20141006
  Transmission Date: 20150528
  Serious: Yes (Hospitalization)
  Sender: FDA-Public Use
  Company Number: US-SA-2014SA133272

PATIENT
  Age: 53 Year
  Sex: Female

DRUGS (4)
  1. LOVENOX [Suspect]
     Active Substance: ENOXAPARIN SODIUM
     Indication: ATRIAL FIBRILLATION
     Route: 065
  2. WARFARIN [Concomitant]
     Active Substance: WARFARIN
  3. LOVENOX [Suspect]
     Active Substance: ENOXAPARIN SODIUM
     Indication: ATRIAL FIBRILLATION
     Route: 065
  4. CARDIZEM [Concomitant]
     Active Substance: DILTIAZEM HYDROCHLORIDE

REACTIONS (6)
  - Skin tightness [Not Recovered/Not Resolved]
  - Injection site haematoma [Not Recovered/Not Resolved]
  - Feeling abnormal [Not Recovered/Not Resolved]
  - Pain [Not Recovered/Not Resolved]
  - Expired product administered [Unknown]
  - Injection site mass [Not Recovered/Not Resolved]
